FAERS Safety Report 4285174-8 (Version None)
Quarter: 2004Q1

REPORT INFORMATION
  Report Type: 
  Country: None (occurrence: None)
  Receive Date: 20040203
  Receipt Date: 20040203
  Transmission Date: 20041129
  Serious: Yes (Life-Threatening)
  Sender: FDA-Public Use
  Company Number: None

PATIENT
  Age: 88 Year
  Sex: Male
  Weight: 61.2356 kg

DRUGS (12)
  1. PAXIL [Suspect]
     Indication: DEPRESSION
     Dosage: 20 MG/D ORAL
     Route: 048
     Dates: start: 20031205, end: 20031211
  2. FOSAMAX [Concomitant]
  3. CALCIUM +VITD [Concomitant]
  4. ASPIRIN [Concomitant]
  5. LIPITOR [Concomitant]
  6. PROSCAR [Concomitant]
  7. FLOMAX [Concomitant]
  8. SYNTHROID [Concomitant]
  9. ALAPRO [Concomitant]
  10. METOPROLOL [Concomitant]
  11. VIT E [Concomitant]
  12. XANAX [Concomitant]

REACTIONS (9)
  - ALANINE AMINOTRANSFERASE INCREASED [None]
  - ASPARTATE AMINOTRANSFERASE INCREASED [None]
  - BLOOD POTASSIUM INCREASED [None]
  - BLOOD SODIUM DECREASED [None]
  - BRAIN NATRIURETIC PEPTIDE INCREASED [None]
  - CARDIAC FAILURE CONGESTIVE [None]
  - FATIGUE [None]
  - PITTING OEDEMA [None]
  - RALES [None]
